FAERS Safety Report 14850622 (Version 3)
Quarter: 2018Q4

REPORT INFORMATION
  Report Type: Spontaneous
  Country: US (occurrence: US)
  Receive Date: 20180506
  Receipt Date: 20181001
  Transmission Date: 20190204
  Serious: No
  Sender: FDA-Public Use
  Company Number: US-ASTRAZENECA-2009BM11898

PATIENT
  Age: 686 Month
  Sex: Male
  Weight: 95.3 kg

DRUGS (6)
  1. BYETTA [Suspect]
     Active Substance: EXENATIDE
     Indication: TYPE 2 DIABETES MELLITUS
     Dosage: 10 UG IN THE MORNING AND 5 UG IN THE EVENING
     Route: 058
     Dates: start: 2008
  2. BYETTA [Suspect]
     Active Substance: EXENATIDE
     Indication: TYPE 2 DIABETES MELLITUS
     Route: 058
     Dates: start: 200711, end: 2008
  3. BYDUREON [Concomitant]
     Active Substance: EXENATIDE
     Route: 065
     Dates: start: 2017
  4. BYDUREON BCISE [Suspect]
     Active Substance: EXENATIDE
     Indication: TYPE 2 DIABETES MELLITUS
     Route: 058
     Dates: start: 20180322
  5. BYETTA [Suspect]
     Active Substance: EXENATIDE
     Indication: TYPE 2 DIABETES MELLITUS
     Route: 058
     Dates: start: 200710, end: 200711
  6. ACTOS [Concomitant]
     Active Substance: PIOGLITAZONE HYDROCHLORIDE
     Dosage: UNK

REACTIONS (11)
  - Device malfunction [Unknown]
  - Skin mass [Not Recovered/Not Resolved]
  - Decreased appetite [Recovered/Resolved]
  - Injection site extravasation [Unknown]
  - Weight decreased [Recovering/Resolving]
  - Wrong technique in product usage process [Unknown]
  - Calcinosis [Not Recovered/Not Resolved]
  - Device issue [Unknown]
  - Nausea [Recovered/Resolved]
  - Device leakage [Unknown]
  - Drug dose omission by device [Unknown]

NARRATIVE: CASE EVENT DATE: 200710
